FAERS Safety Report 14860217 (Version 1)
Quarter: 2018Q2

REPORT INFORMATION
  Report Type: Report from Study
  Country: US (occurrence: US)
  Receive Date: 20180508
  Receipt Date: 20180508
  Transmission Date: 20180711
  Serious: Yes (Other)
  Sender: FDA-Public Use
  Company Number: US-JNJFOC-20180507226

PATIENT
  Sex: Male

DRUGS (7)
  1. FLUOROURACIL. [Suspect]
     Active Substance: FLUOROURACIL
     Indication: PRECANCEROUS SKIN LESION
     Route: 061
  2. PRILOSEC [Concomitant]
     Active Substance: OMEPRAZOLE MAGNESIUM
  3. LOSARTAN. [Concomitant]
     Active Substance: LOSARTAN
  4. NORVASC [Concomitant]
     Active Substance: AMLODIPINE BESYLATE
  5. IMBRUVICA [Suspect]
     Active Substance: IBRUTINIB
     Indication: PRODUCT USED FOR UNKNOWN INDICATION
     Route: 048
     Dates: start: 20150706, end: 20180404
  6. ALLOPURINOL. [Concomitant]
     Active Substance: ALLOPURINOL
  7. NADOLOL. [Concomitant]
     Active Substance: NADOLOL

REACTIONS (3)
  - Precancerous skin lesion [Unknown]
  - Skin haemorrhage [Unknown]
  - Impaired healing [Unknown]
